FAERS Safety Report 9888355 (Version 3)
Quarter: 2014Q2

REPORT INFORMATION
  Report Type: Report from Study
  Country: JP (occurrence: JP)
  Receive Date: 20140211
  Receipt Date: 20140404
  Transmission Date: 20141212
  Serious: Yes (Other)
  Sender: FDA-Public Use
  Company Number: JP-UCBSA-112026

PATIENT
  Age: 75 Year
  Sex: Male
  Weight: 40 kg

DRUGS (17)
  1. CIMZIA [Suspect]
     Indication: RHEUMATOID ARTHRITIS
     Dosage: 200 MG SYRINGE, BIWEEKLY
     Route: 058
     Dates: start: 20130709, end: 20130806
  2. CIMZIA [Suspect]
     Indication: RHEUMATOID ARTHRITIS
     Dosage: 200 MG SYRINGE, BIWEEKLY
     Route: 058
     Dates: start: 20130821, end: 20131127
  3. CIMZIA [Suspect]
     Indication: RHEUMATOID ARTHRITIS
     Dosage: 200 MG SYRINGE, BIWEEKLY
     Route: 058
     Dates: start: 20140115
  4. CELECOX [Concomitant]
     Dosage: DAILY DOSE: 100 MG
     Route: 048
  5. PREDNISOLONE [Concomitant]
     Dosage: DAILY DOSE: 7.5 MG
     Route: 048
  6. OPALMON [Concomitant]
     Dosage: DAILY DOSE: 15?G
     Route: 048
     Dates: end: 20131204
  7. NEUROTROPIN [Concomitant]
     Dosage: DAILY DOSE: 12 IU
     Route: 048
  8. MAGLAX [Concomitant]
     Dosage: DAILY DOSE: 990 MG
     Route: 048
  9. MUCOSTA [Concomitant]
     Dosage: DAILY DOSE: 300 MG
     Route: 048
  10. VITANEURIN [Concomitant]
     Dosage: DAILY DOSE: 100 MG
     Route: 048
  11. GASTER D [Concomitant]
     Dosage: DAILY DOSE: 40 MG
     Route: 048
  12. ROCALTROL [Concomitant]
     Dosage: DAILY DOSE: 0.25 ?G
     Route: 048
  13. LASIX [Concomitant]
     Dosage: DAILY DOSE: 20 MG
     Route: 048
  14. TRAMCET [Concomitant]
     Dosage: DAILY DOSE: 1 DF
     Route: 048
  15. TRAMCET [Concomitant]
     Dosage: DAILY DOSE: 1 DF
     Route: 048
  16. GANATON [Concomitant]
     Dosage: DAILY DOSE: 50 MG
     Route: 048
  17. TOUGHMAC E [Concomitant]
     Dosage: DAILY DOSE: 1 G
     Route: 048

REACTIONS (1)
  - Urinary bladder haemorrhage [Recovered/Resolved]
